FAERS Safety Report 7046714-9 (Version None)
Quarter: 2010Q4

REPORT INFORMATION
  Report Type: 
  Country: None (occurrence: None)
  Receive Date: 20101015
  Receipt Date: 20101007
  Transmission Date: 20110411
  Serious: Yes (Hospitalization)
  Sender: FDA-Public Use
  Company Number: FR-JNJFOC-20101003246

PATIENT
  Age: 82 Year
  Sex: Male

DRUGS (7)
  1. RISPERDAL CONSTA [Suspect]
     Indication: AGGRESSION
     Route: 030
  2. RISPERDAL CONSTA [Suspect]
     Route: 030
  3. RISPERDAL CONSTA [Suspect]
     Indication: PARANOIA
     Route: 030
  4. RISPERDAL CONSTA [Suspect]
     Route: 030
  5. RAMIPRIL [Concomitant]
     Indication: CARDIAC DISORDER
  6. CARDENSIEL [Concomitant]
     Indication: CARDIAC DISORDER
  7. BETA  BLOCKER AGENT [Concomitant]
     Indication: CARDIAC DISORDER

REACTIONS (3)
  - AKATHISIA [None]
  - CARDIAC DISORDER [None]
  - RESTLESS LEGS SYNDROME [None]
